FAERS Safety Report 6307242-9 (Version None)
Quarter: 2009Q3

REPORT INFORMATION
  Report Type: 
  Country: None (occurrence: None)
  Receive Date: 20090812
  Receipt Date: 20090812
  Transmission Date: 20100115
  Serious: Yes (Hospitalization)
  Sender: FDA-Public Use
  Company Number: None

PATIENT
  Age: 35 Year
  Sex: Female
  Weight: 100 kg

DRUGS (2)
  1. GAMMAGARD LIQUID [Suspect]
     Indication: SYSTEMIC LUPUS ERYTHEMATOSUS
     Dosage: 75 GM QD IV
     Route: 042
     Dates: start: 20090806, end: 20090807
  2. GAMMAGARD LIQUID [Suspect]

REACTIONS (6)
  - CHILLS [None]
  - HEADACHE [None]
  - INFUSION RELATED REACTION [None]
  - MENINGITIS ASEPTIC [None]
  - NUCHAL RIGIDITY [None]
  - PAIN [None]
